FAERS Safety Report 25551871 (Version 2)
Quarter: 2025Q3

REPORT INFORMATION
  Report Type: Report from Study
  Country: US (occurrence: US)
  Receive Date: 20250714
  Receipt Date: 20250806
  Transmission Date: 20251020
  Serious: Yes (Death, Hospitalization, Other)
  Sender: ABBVIE
  Company Number: US-ABBVIE-6367212

PATIENT
  Age: 92 Year
  Sex: Male

DRUGS (1)
  1. LINZESS [Suspect]
     Active Substance: LINACLOTIDE
     Indication: Constipation
     Dosage: 72 MICROGRAM?FORM STRENGTH: 72 MICROGRAM?START DATE TEXT: UNKNOWN?STOP DATE TEXT: UNKNOWN
     Route: 048

REACTIONS (9)
  - Death [Fatal]
  - Fall [Unknown]
  - Hospice care [Unknown]
  - Fall [Unknown]
  - Cardiac failure [Unknown]
  - Fall [Unknown]
  - Clostridium difficile infection [Unknown]
  - Atrial fibrillation [Unknown]
  - Injury [Unknown]

NARRATIVE: CASE EVENT DATE: 20250101
